FAERS Safety Report 18679884 (Version 7)
Quarter: 2021Q1

REPORT INFORMATION
  Report Type: Report from Study
  Country: BR (occurrence: BR)
  Receive Date: 20201229
  Receipt Date: 20210225
  Transmission Date: 20210419
  Serious: Yes (Life-Threatening, Hospitalization, Other)
  Sender: FDA-Public Use
  Company Number: BR-GILEAD-2020-0510827

PATIENT
  Age: 48 Year
  Sex: Male
  Weight: 105 kg

DRUGS (65)
  1. TOCILIZUMAB. [Suspect]
     Active Substance: TOCILIZUMAB
     Indication: COVID-19 PNEUMONIA
     Dosage: 100 ML, ONCE
     Route: 042
     Dates: start: 20201204
  2. PANTOPRAZOLE [Concomitant]
     Active Substance: PANTOPRAZOLE
     Dates: start: 20201203
  3. DEXTROKETAMINE [Concomitant]
     Dates: start: 20201205
  4. OXYGEN. [Concomitant]
     Active Substance: OXYGEN
     Dosage: UNK
     Route: 055
     Dates: start: 20201204
  5. OXYGEN. [Concomitant]
     Active Substance: OXYGEN
     Dosage: 40 UNK
     Route: 007
     Dates: start: 20201212
  6. OXYGEN. [Concomitant]
     Active Substance: OXYGEN
     Dosage: 16?DEC?2020
     Route: 007
     Dates: start: 20201216
  7. OXYGEN. [Concomitant]
     Active Substance: OXYGEN
     Dosage: 80 UNK
     Route: 007
     Dates: start: 20201208
  8. OXYGEN. [Concomitant]
     Active Substance: OXYGEN
     Dosage: 45 UNK
     Route: 007
     Dates: start: 20201214
  9. OXYGEN. [Concomitant]
     Active Substance: OXYGEN
     Dosage: 40 %
     Route: 007
     Dates: start: 20210102
  10. OXYGEN. [Concomitant]
     Active Substance: OXYGEN
     Dosage: 50 %
     Route: 007
     Dates: start: 20201231
  11. OXYGEN. [Concomitant]
     Active Substance: OXYGEN
     Dosage: TRANSTRACHEAL
     Dates: start: 20210108
  12. ADRENALINE [EPINEPHRINE] [Concomitant]
     Active Substance: EPINEPHRINE
     Indication: EPISTAXIS
     Dosage: 1 MG, QD
     Dates: start: 20201216, end: 20201222
  13. NORADRENALINE [Concomitant]
     Active Substance: NOREPINEPHRINE
     Indication: HYPOTENSION
     Dates: start: 20201205
  14. DORMONID [Concomitant]
     Active Substance: MIDAZOLAM MALEATE
     Dates: start: 20201205
  15. REMDESIVIR. [Suspect]
     Active Substance: REMDESIVIR
     Indication: COVID-19 PNEUMONIA
     Dosage: 100 ML, ONCE
     Route: 042
     Dates: start: 20201204
  16. REMDESIVIR. [Suspect]
     Active Substance: REMDESIVIR
     Dosage: UNK
     Route: 042
     Dates: start: 20201213
  17. TOCILIZUMAB. [Suspect]
     Active Substance: TOCILIZUMAB
     Dosage: UNK
     Route: 042
  18. LACTATED RINGERS SOLUTION [Concomitant]
     Active Substance: CALCIUM CHLORIDE\POTASSIUM CHLORIDE\SODIUM CHLORIDE\SODIUM LACTATE
     Dates: start: 20201205
  19. OXYGEN. [Concomitant]
     Active Substance: OXYGEN
     Dosage: 25/DEC/2020
     Route: 007
     Dates: start: 20201228
  20. OXYGEN. [Concomitant]
     Active Substance: OXYGEN
     Dosage: 55 %
     Route: 007
     Dates: start: 20201230
  21. OXYGEN. [Concomitant]
     Active Substance: OXYGEN
     Dosage: TRANSTRACHEAL
     Dates: start: 20201225
  22. OXYGEN. [Concomitant]
     Active Substance: OXYGEN
     Dosage: TRANSTRACHEAL
     Dates: start: 20210108
  23. NORADRENALINE [Concomitant]
     Active Substance: NOREPINEPHRINE
     Dosage: 20 ML
     Dates: start: 20201204, end: 20201218
  24. ENOXAPARIN [Concomitant]
     Active Substance: ENOXAPARIN
     Dates: start: 20201203
  25. METOCLOPRAMIDE. [Concomitant]
     Active Substance: METOCLOPRAMIDE
     Dates: start: 20201203
  26. OXYGEN. [Concomitant]
     Active Substance: OXYGEN
     Dosage: 40 %
     Route: 007
     Dates: start: 20210102
  27. OXYGEN. [Concomitant]
     Active Substance: OXYGEN
     Dosage: 30 %
     Dates: start: 20201215
  28. OXYGEN. [Concomitant]
     Active Substance: OXYGEN
     Route: 007
     Dates: start: 20201209
  29. MEROPENEM. [Concomitant]
     Active Substance: MEROPENEM
     Indication: PNEUMONIA
     Dosage: 2000 MG, QD
     Dates: start: 20201224, end: 20210106
  30. TOCILIZUMAB. [Suspect]
     Active Substance: TOCILIZUMAB
     Dosage: UNK
     Route: 042
     Dates: start: 20201205
  31. TOCILIZUMAB. [Suspect]
     Active Substance: TOCILIZUMAB
     Dosage: UNK
     Route: 042
     Dates: start: 20201205
  32. CEFTRIAXONE SODIUM. [Concomitant]
     Active Substance: CEFTRIAXONE SODIUM
  33. OSELTAMIVIR PHOSPHATE. [Concomitant]
     Active Substance: OSELTAMIVIR PHOSPHATE
     Indication: COVID-19
  34. OXYGEN. [Concomitant]
     Active Substance: OXYGEN
     Dosage: 70 %
     Route: 007
     Dates: start: 20201229
  35. OXYGEN. [Concomitant]
     Active Substance: OXYGEN
     Dosage: 80 %
     Route: 007
     Dates: start: 20201231
  36. OXYGEN. [Concomitant]
     Active Substance: OXYGEN
     Dosage: 40 %
     Dates: start: 20210104
  37. OXYGEN. [Concomitant]
     Active Substance: OXYGEN
     Dosage: 40 %
     Dates: start: 20210104
  38. OXYGEN. [Concomitant]
     Active Substance: OXYGEN
     Dosage: TRANSTRACHEAL
     Dates: start: 20210105
  39. CEFTRIAXONE. [Concomitant]
     Active Substance: CEFTRIAXONE
     Dates: start: 20201202
  40. DIPYRONE [Concomitant]
     Active Substance: DIPYRONE
     Dates: start: 20201203
  41. OXYGEN. [Concomitant]
     Active Substance: OXYGEN
     Dosage: 22?DEC?2020
     Route: 007
     Dates: start: 20201219
  42. OXYGEN. [Concomitant]
     Active Substance: OXYGEN
     Dosage: 50 %
     Route: 007
     Dates: start: 20210101
  43. OXYGEN. [Concomitant]
     Active Substance: OXYGEN
     Dosage: 100 %
     Route: 007
     Dates: start: 20201230
  44. OXYGEN. [Concomitant]
     Active Substance: OXYGEN
     Dosage: 40 %
     Dates: start: 20210105
  45. OXYGEN. [Concomitant]
     Active Substance: OXYGEN
     Dosage: 40 %
     Dates: start: 20210106
  46. OXYGEN. [Concomitant]
     Active Substance: OXYGEN
     Dosage: 40 %
     Dates: start: 20210105
  47. OXYGEN. [Concomitant]
     Active Substance: OXYGEN
     Dosage: TRANSTRACHEAL
     Dates: start: 20210107
  48. ANIDULAFUNGIN [Concomitant]
     Active Substance: ANIDULAFUNGIN
     Indication: SEPTIC SHOCK
     Dosage: 100 MG, QD
     Dates: start: 20201230, end: 20210106
  49. NORADRENALINE [Concomitant]
     Active Substance: NOREPINEPHRINE
     Dosage: UNK
     Dates: start: 20201225, end: 20210108
  50. OXYGEN. [Concomitant]
     Active Substance: OXYGEN
     Dosage: 50 %
     Route: 007
     Dates: start: 20210101
  51. OXYGEN. [Concomitant]
     Active Substance: OXYGEN
     Dosage: 35 %
     Route: 007
     Dates: start: 20201218
  52. VANCOMYCIN [Concomitant]
     Active Substance: VANCOMYCIN
     Indication: PNEUMONIA
     Dosage: 1000 MG, QD
     Dates: start: 20201220, end: 20210101
  53. FENTANYL. [Concomitant]
     Active Substance: FENTANYL
     Dates: start: 20201205
  54. OXYGEN. [Concomitant]
     Active Substance: OXYGEN
     Dosage: 50 %
     Route: 007
     Dates: start: 20201205
  55. OXYGEN. [Concomitant]
     Active Substance: OXYGEN
     Dosage: 40 %
     Route: 007
     Dates: start: 20210102
  56. OXYGEN. [Concomitant]
     Active Substance: OXYGEN
     Dosage: 40 %
     Route: 007
     Dates: start: 20210103
  57. OXYGEN. [Concomitant]
     Active Substance: OXYGEN
     Dosage: 40 %
     Dates: start: 20210106
  58. OXYGEN. [Concomitant]
     Active Substance: OXYGEN
     Dosage: 40 %
     Route: 007
     Dates: start: 20201210
  59. OXYGEN. [Concomitant]
     Active Substance: OXYGEN
     Route: 007
     Dates: start: 20201215
  60. ROCURONIUM [Concomitant]
     Active Substance: ROCURONIUM BROMIDE
     Dates: start: 20201205
  61. OXYGEN. [Concomitant]
     Active Substance: OXYGEN
     Dosage: 26/DEC/2020
     Route: 007
     Dates: start: 20201213
  62. OXYGEN. [Concomitant]
     Active Substance: OXYGEN
     Dosage: 90 UNK
     Route: 007
     Dates: start: 20201204
  63. OXYGEN. [Concomitant]
     Active Substance: OXYGEN
     Dosage: 60 %
     Route: 007
     Dates: start: 20201208
  64. OXYGEN. [Concomitant]
     Active Substance: OXYGEN
     Dosage: 40 %
     Route: 007
     Dates: start: 20201206
  65. OSELTAMIVIR [Concomitant]
     Active Substance: OSELTAMIVIR
     Dosage: 75 MG
     Dates: start: 20201203

REACTIONS (3)
  - Septic shock [Recovering/Resolving]
  - Urinary tract infection [Recovering/Resolving]
  - Pneumonia [Recovering/Resolving]

NARRATIVE: CASE EVENT DATE: 20201218
